FAERS Safety Report 5920546-4 (Version None)
Quarter: 2008Q4

REPORT INFORMATION
  Report Type: 
  Country: None (occurrence: None)
  Receive Date: 20081016
  Receipt Date: 20081013
  Transmission Date: 20090506
  Serious: Yes (Death, Hospitalization)
  Sender: FDA-Public Use
  Company Number: BR-ASTRAZENECA-2008UW22354

PATIENT
  Age: 80 Year
  Sex: Female

DRUGS (17)
  1. CRESTOR [Suspect]
     Indication: HYPERCHOLESTEROLAEMIA
     Route: 048
     Dates: start: 20080921
  2. NPH INSULIN, BEEF [Concomitant]
     Indication: DIABETES MELLITUS
  3. METFORMIN [Concomitant]
     Indication: DIABETES MELLITUS
     Route: 048
  4. HUMALOG [Concomitant]
     Indication: DIABETES MELLITUS
  5. GINKGO BILOBA [Concomitant]
     Indication: PROMOTION OF PERIPHERAL CIRCULATION
     Route: 048
  6. VENALOT [Concomitant]
     Indication: PROMOTION OF PERIPHERAL CIRCULATION
     Route: 048
  7. FUROSEMIDE [Concomitant]
     Route: 048
  8. ASPIRIN [Concomitant]
     Route: 048
  9. DIGOXIN [Concomitant]
     Indication: ARRHYTHMIA
     Route: 048
  10. ENALAPRIL MALEATE [Concomitant]
     Indication: HYPERTENSION
     Route: 048
  11. METYLDOPA [Concomitant]
     Indication: HYPERTENSION
     Route: 048
  12. SUSTRATE [Concomitant]
     Route: 048
  13. BENERVA [Concomitant]
     Route: 048
  14. DIAZEPAM [Concomitant]
     Route: 048
  15. NEULEPTIL [Concomitant]
     Indication: DIABETIC NEUROPATHY
     Route: 048
     Dates: start: 20080401
  16. TRYPTANOL [Concomitant]
     Indication: DIABETIC NEUROPATHY
     Route: 048
     Dates: start: 20080401
  17. OMEPRAZOLE [Concomitant]
     Route: 048

REACTIONS (2)
  - ACUTE MYOCARDIAL INFARCTION [None]
  - RESPIRATORY FAILURE [None]
